FAERS Safety Report 23593699 (Version 3)
Quarter: 2024Q2

REPORT INFORMATION
  Report Type: Spontaneous
  Country: JP (occurrence: JP)
  Receive Date: 20240304
  Receipt Date: 20240409
  Transmission Date: 20240716
  Serious: Yes (Other)
  Sender: FDA-Public Use
  Company Number: JP-DSPHARMA-2024SMP002550

PATIENT

DRUGS (5)
  1. LATUDA [Suspect]
     Active Substance: LURASIDONE HYDROCHLORIDE
     Indication: Schizophrenia
     Dosage: 40 MG, QD
     Route: 048
     Dates: start: 20231211, end: 20231217
  2. LATUDA [Suspect]
     Active Substance: LURASIDONE HYDROCHLORIDE
     Dosage: 80 MG, QD
     Route: 048
     Dates: start: 20231218, end: 20240114
  3. OLANZAPINE [Concomitant]
     Active Substance: OLANZAPINE
     Dosage: 10 MG, QD
     Route: 065
     Dates: end: 20231210
  4. OLANZAPINE [Concomitant]
     Active Substance: OLANZAPINE
     Dosage: 5 MG, QD
     Route: 065
     Dates: start: 20231211, end: 20231217
  5. OLANZAPINE [Concomitant]
     Active Substance: OLANZAPINE
     Dosage: 2.5 MG, QD
     Route: 065
     Dates: start: 20231218, end: 20231225

REACTIONS (1)
  - Ileus paralytic [Recovering/Resolving]

NARRATIVE: CASE EVENT DATE: 20240115
